FAERS Safety Report 9796655 (Version 8)
Quarter: 2015Q3

REPORT INFORMATION
  Report Type: Spontaneous
  Country: US (occurrence: US)
  Receive Date: 20140103
  Receipt Date: 20150716
  Transmission Date: 20151125
  Serious: Yes (Hospitalization, Other)
  Sender: FDA-Public Use
  Company Number: US-GLAXOSMITHKLINE-A1033079A

PATIENT
  Sex: Female

DRUGS (11)
  1. FLOLAN [Suspect]
     Active Substance: EPOPROSTENOL SODIUM
     Dosage: UNK
     Dates: start: 20020322
  2. FLOLAN [Suspect]
     Active Substance: EPOPROSTENOL SODIUM
     Dosage: 45 NG/KG/MIN
     Dates: start: 20020401
  3. TRACLEER [Concomitant]
     Active Substance: BOSENTAN
  4. FLOLAN [Suspect]
     Active Substance: EPOPROSTENOL SODIUM
     Dosage: UNK
  5. FLOLAN [Suspect]
     Active Substance: EPOPROSTENOL SODIUM
     Dosage: 40 NG/KG/MIN CONTINUOUSLY; CONCENTRATION: 60,000 NG/ML; PUMP RATE: 58 ML/DAY; VIAL STRENGTH: 1.5 MG
     Route: 042
  6. FLOLAN [Suspect]
     Active Substance: EPOPROSTENOL SODIUM
     Dosage: 40 NG/KG/MIN (CONCENTRATION 60,000 NG/ML, PUMP RATE 58 ML/DAY, VIAL STRENGTH 1.5 MG), CO
     Route: 042
  7. FLOLAN [Suspect]
     Active Substance: EPOPROSTENOL SODIUM
     Dosage: 41 NG/KG/MIN (CONCENTRATION 60,000 NG/ML, PUMP RATE 58 ML/DAY, VIAL STRENGTH 1.5 MG), CO
     Route: 042
     Dates: start: 20020402
  8. COUMADIN [Concomitant]
     Active Substance: WARFARIN SODIUM
  9. FLOLAN [Suspect]
     Active Substance: EPOPROSTENOL SODIUM
     Indication: PULMONARY ARTERIAL HYPERTENSION
     Dosage: 55 NG/KG/MIN CONTINUOUSLY (CONCENTRATION 60,000 NG/ML; 1.5 MG VIAL STRENGTH)
     Route: 042
     Dates: start: 20020302
  10. ADCIRCA [Concomitant]
     Active Substance: TADALAFIL
  11. FLOLAN [Suspect]
     Active Substance: EPOPROSTENOL SODIUM
     Dosage: 47 NG/KG/MIN
     Dates: start: 20020401

REACTIONS (12)
  - Injection site erythema [Not Recovered/Not Resolved]
  - Duodenal ulcer perforation [Unknown]
  - Hyperhidrosis [Unknown]
  - Application site pruritus [Unknown]
  - Injection site pain [Not Recovered/Not Resolved]
  - Device related infection [Unknown]
  - Application site erythema [Unknown]
  - Infection [Unknown]
  - Application site perspiration [Unknown]
  - Ulcer haemorrhage [Recovered/Resolved]
  - Application site exfoliation [Unknown]
  - Catheter site pain [Unknown]

NARRATIVE: CASE EVENT DATE: 2015
